FAERS Safety Report 6644456-2 (Version None)
Quarter: 2010Q1

REPORT INFORMATION
  Report Type: 
  Country: None (occurrence: None)
  Receive Date: 20100322
  Receipt Date: 20100317
  Transmission Date: 20100710
  Serious: Yes (Death)
  Sender: FDA-Public Use
  Company Number: US-CEPHALON-2010001482

PATIENT
  Sex: Female

DRUGS (4)
  1. TREANDA [Suspect]
     Indication: MULTIPLE MYELOMA
     Dates: start: 20100201
  2. ALBUTEROL [Suspect]
     Indication: RESPIRATORY DISORDER
  3. VELCADE [Concomitant]
     Indication: MULTIPLE MYELOMA
  4. ADVAIR DISKUS 100/50 [Concomitant]
     Indication: RESPIRATORY DISORDER

REACTIONS (2)
  - MULTIPLE MYELOMA [None]
  - RESPIRATORY FAILURE [None]
